FAERS Safety Report 21365526 (Version 3)
Quarter: 2023Q1

REPORT INFORMATION
  Report Type: Spontaneous
  Country: US (occurrence: US)
  Receive Date: 20220922
  Receipt Date: 20230313
  Transmission Date: 20230418
  Serious: No
  Sender: FDA-Public Use
  Company Number: US-PHARMAESSENTIA CORPORATION-US-2022-PEC-000729

PATIENT

DRUGS (4)
  1. BESREMI [Suspect]
     Active Substance: ROPEGINTERFERON ALFA-2B-NJFT
     Indication: Essential thrombocythaemia
     Dosage: 100 MCG, Q2W
     Route: 058
     Dates: start: 20220704
  2. BESREMI [Suspect]
     Active Substance: ROPEGINTERFERON ALFA-2B-NJFT
     Dosage: INCREASED DOSE
     Route: 065
  3. BESREMI [Suspect]
     Active Substance: ROPEGINTERFERON ALFA-2B-NJFT
     Dosage: UNK
     Route: 058
  4. BESREMI [Suspect]
     Active Substance: ROPEGINTERFERON ALFA-2B-NJFT
     Dosage: UNK
     Route: 065

REACTIONS (30)
  - Lymphadenopathy [Unknown]
  - Feeling abnormal [Unknown]
  - Morning sickness [Unknown]
  - Hepatosplenomegaly [Unknown]
  - Haemangioma of liver [Unknown]
  - Off label use [Unknown]
  - Paranasal sinus discomfort [Unknown]
  - Vomiting [Unknown]
  - Discomfort [Unknown]
  - White blood cell count abnormal [Unknown]
  - Injection site bruising [Unknown]
  - Contusion [Unknown]
  - Depressed mood [Unknown]
  - Nausea [Not Recovered/Not Resolved]
  - Fatigue [Not Recovered/Not Resolved]
  - Decreased appetite [Not Recovered/Not Resolved]
  - Alopecia [Unknown]
  - Vision blurred [Unknown]
  - Night sweats [Not Recovered/Not Resolved]
  - Diarrhoea [Recovered/Resolved]
  - Abdominal pain upper [Unknown]
  - Dizziness [Unknown]
  - Insomnia [Unknown]
  - Platelet count decreased [Recovered/Resolved]
  - Rash erythematous [Unknown]
  - Rash papular [Unknown]
  - Rash pruritic [Unknown]
  - Asthenia [Recovering/Resolving]
  - Influenza like illness [Unknown]
  - Headache [Unknown]

NARRATIVE: CASE EVENT DATE: 20220701
